FAERS Safety Report 25877730 (Version 1)
Quarter: 2025Q4

REPORT INFORMATION
  Report Type: Spontaneous
  Country: US (occurrence: US)
  Receive Date: 20251003
  Receipt Date: 20251003
  Transmission Date: 20260118
  Serious: No
  Sender: TEVA
  Company Number: US-ABBVIE-6477952

PATIENT
  Age: 74 Year
  Sex: Female
  Weight: 52.163 kg

DRUGS (1)
  1. OXYTROL [Suspect]
     Active Substance: OXYBUTYNIN
     Indication: Cystitis interstitial
     Route: 062
     Dates: start: 2010, end: 202509

REACTIONS (4)
  - Application site erythema [Not Recovered/Not Resolved]
  - Application site pruritus [Not Recovered/Not Resolved]
  - Product physical issue [Unknown]
  - Off label use [Unknown]

NARRATIVE: CASE EVENT DATE: 20250901
